FAERS Safety Report 24118595 (Version 1)
Quarter: 2024Q3

REPORT INFORMATION
  Report Type: Spontaneous
  Country: MX (occurrence: MX)
  Receive Date: 20240722
  Receipt Date: 20240722
  Transmission Date: 20241017
  Serious: Yes (Other)
  Sender: EPIC PHARM
  Company Number: MX-EPICPHARMA-MX-2024EPCLIT00846

PATIENT
  Age: 45 Year
  Sex: Male

DRUGS (1)
  1. QUINIDINE SULFATE [Suspect]
     Active Substance: QUINIDINE SULFATE
     Indication: Brugada syndrome
     Route: 065

REACTIONS (4)
  - Arrhythmic storm [Unknown]
  - Drug withdrawal syndrome [Unknown]
  - On and off phenomenon [Unknown]
  - Product availability issue [Unknown]
